FAERS Safety Report 13670393 (Version 1)
Quarter: 2017Q2

REPORT INFORMATION
  Report Type: Spontaneous
  Country: US (occurrence: US)
  Receive Date: 20170620
  Receipt Date: 20170620
  Transmission Date: 20170830
  Serious: Yes (Hospitalization)
  Sender: FDA-Public Use
  Company Number: US-ELI_LILLY_AND_COMPANY-US201706004111

PATIENT
  Age: 68 Year
  Sex: Female

DRUGS (5)
  1. HUMALOG [Suspect]
     Active Substance: INSULIN LISPRO
     Dosage: 10 U, WITH MEALS
     Route: 058
  2. LANTUS [Concomitant]
     Active Substance: INSULIN GLARGINE
     Indication: TYPE 2 DIABETES MELLITUS
     Dosage: 30 U, EACH EVENING
     Route: 065
  3. HUMALOG [Suspect]
     Active Substance: INSULIN LISPRO
     Dosage: 4 U, EACH EVENING
     Route: 058
  4. HUMALOG [Suspect]
     Active Substance: INSULIN LISPRO
     Indication: TYPE 2 DIABETES MELLITUS
     Dosage: 10 U, WITH MEALS
     Route: 058
     Dates: start: 2002
  5. HUMALOG [Suspect]
     Active Substance: INSULIN LISPRO
     Dosage: 4 U, EACH EVENING
     Route: 058
     Dates: start: 2002

REACTIONS (4)
  - Acute kidney injury [Unknown]
  - Cataract [Unknown]
  - Hypoacusis [Unknown]
  - Limb discomfort [Unknown]

NARRATIVE: CASE EVENT DATE: 201108
